FAERS Safety Report 7865060-4 (Version None)
Quarter: 2011Q4

REPORT INFORMATION
  Report Type: 
  Country: None (occurrence: None)
  Receive Date: 20111028
  Receipt Date: 20101007
  Transmission Date: 20120403
  Serious: No
  Sender: FDA-Public Use
  Company Number: US-GLAXOSMITHKLINE-A0885458A

PATIENT
  Age: 39 Year
  Sex: Male

DRUGS (9)
  1. ADVAIR DISKUS 100/50 [Suspect]
     Indication: LUNG DISORDER
     Dosage: 1PUFF TWICE PER DAY
     Route: 055
     Dates: start: 20070101, end: 20101007
  2. BUSPIRONE [Concomitant]
  3. PROAIR HFA [Concomitant]
  4. ZYRTEC [Concomitant]
  5. RAMIPRIL [Concomitant]
  6. AMITRIPTYLINE HCL [Concomitant]
  7. CLONAZEPAM [Concomitant]
  8. ZANTAC [Concomitant]
  9. LORAZEPAM [Concomitant]

REACTIONS (4)
  - DYSPNOEA [None]
  - ANXIETY [None]
  - DIZZINESS [None]
  - FEELING ABNORMAL [None]
